FAERS Safety Report 5081953-8 (Version None)
Quarter: 2006Q3

REPORT INFORMATION
  Report Type: 
  Country: None (occurrence: None)
  Receive Date: 20060811
  Receipt Date: 20060728
  Transmission Date: 20061208
  Serious: Yes (Other)
  Sender: FDA-Public Use
  Company Number: 430013M06DEU

PATIENT
  Sex: Female

DRUGS (3)
  1. NOVANTRONE [Suspect]
  2. ANTIEPILEPTICS [Concomitant]
  3. OTHER CHEMOTHERAPEUTICS [Concomitant]

REACTIONS (2)
  - CONDITION AGGRAVATED [None]
  - EPILEPSY [None]
